FAERS Safety Report 9709731 (Version 2)
Quarter: 2014Q1

REPORT INFORMATION
  Report Type: Spontaneous
  Country: CA (occurrence: CA)
  Receive Date: 20131126
  Receipt Date: 20140107
  Transmission Date: 20141002
  Serious: Yes (Life-Threatening, Hospitalization)
  Sender: FDA-Public Use
  Company Number: CA-JNJFOC-20131111809

PATIENT
  Age: 80 Year
  Sex: Male
  Weight: 84 kg

DRUGS (2)
  1. XARELTO [Suspect]
     Indication: THROMBOSIS PROPHYLAXIS
     Route: 048
     Dates: start: 20130318, end: 20130327
  2. ACETYLSALICYLIC ACID [Concomitant]
     Indication: PRODUCT USED FOR UNKNOWN INDICATION
     Route: 065

REACTIONS (8)
  - Asthenia [Not Recovered/Not Resolved]
  - Dizziness postural [Not Recovered/Not Resolved]
  - Haematemesis [Not Recovered/Not Resolved]
  - Haematochezia [Unknown]
  - Haemoglobin decreased [Not Recovered/Not Resolved]
  - Malaise [Not Recovered/Not Resolved]
  - Mobility decreased [Not Recovered/Not Resolved]
  - Troponin increased [Not Recovered/Not Resolved]
